FAERS Safety Report 10183581 (Version 1)
Quarter: 2014Q2

REPORT INFORMATION
  Report Type: Report from Study
  Country: US (occurrence: US)
  Receive Date: 20140520
  Receipt Date: 20140520
  Transmission Date: 20141212
  Serious: Yes (Hospitalization)
  Sender: FDA-Public Use
  Company Number: US-ACTELION-A-US2014-98955

PATIENT
  Age: 71 Year
  Sex: Male

DRUGS (2)
  1. MACITENTAN [Suspect]
     Indication: PULMONARY ARTERIAL HYPERTENSION
     Dosage: 10 MG, QD
     Route: 048
     Dates: start: 20140113
  2. COUMADIN [Concomitant]
     Dosage: 2.5 MG, UNK

REACTIONS (1)
  - Vascular rupture [Unknown]
